FAERS Safety Report 6845279-1 (Version None)
Quarter: 2010Q3

REPORT INFORMATION
  Report Type: 
  Country: None (occurrence: None)
  Receive Date: 20100715
  Receipt Date: 20070818
  Transmission Date: 20110219
  Serious: No
  Sender: FDA-Public Use
  Company Number: US-PFIZER INC-2007069810

PATIENT
  Sex: Female
  Weight: 77.3 kg

DRUGS (14)
  1. CHANTIX [Suspect]
     Indication: SMOKING CESSATION THERAPY
     Dates: start: 20070809
  2. PROMETHAZINE [Concomitant]
     Indication: NAUSEA
  3. COPAXONE [Concomitant]
  4. FENTANYL [Concomitant]
     Route: 062
  5. LORTAB [Concomitant]
  6. CLONAZEPAM [Concomitant]
  7. DICYCLOMINE [Concomitant]
  8. FLEXERIL [Concomitant]
  9. OMEPRAZOLE [Concomitant]
     Indication: GASTROOESOPHAGEAL REFLUX DISEASE
  10. DIAZEPAM [Concomitant]
  11. LEXAPRO [Concomitant]
  12. AMANTADINE HCL [Concomitant]
  13. ADVAIR DISKUS 100/50 [Concomitant]
     Indication: BRONCHITIS
  14. ALBUTEROL [Concomitant]
     Indication: BRONCHITIS

REACTIONS (2)
  - HEADACHE [None]
  - NAUSEA [None]
